FAERS Safety Report 6945242-6 (Version None)
Quarter: 2010Q3

REPORT INFORMATION
  Report Type: 
  Country: None (occurrence: None)
  Receive Date: 20100827
  Receipt Date: 20100625
  Transmission Date: 20110219
  Serious: No
  Sender: FDA-Public Use
  Company Number: US-KINGPHARMUSA00001-K201000803

PATIENT
  Age: 74 Year
  Sex: Female
  Weight: 80.272 kg

DRUGS (2)
  1. FLECTOR [Suspect]
     Indication: POST-TRAUMATIC PAIN
     Dosage: 0.5 PATCH, SINGLE
     Route: 061
     Dates: start: 20100624, end: 20100624
  2. FLECTOR [Suspect]
     Indication: BACK INJURY
     Dosage: 1 PATCH, UNK
     Route: 061
     Dates: start: 20100625

REACTIONS (1)
  - DRUG INEFFECTIVE [None]
